FAERS Safety Report 9640702 (Version 1)
Quarter: 2013Q4

REPORT INFORMATION
  Report Type: Report from Study
  Country: US (occurrence: US)
  Receive Date: 20131023
  Receipt Date: 20131023
  Transmission Date: 20140711
  Serious: No
  Sender: FDA-Public Use
  Company Number: US-ABBVIE-13P-163-1066634-00

PATIENT
  Age: 50 Year
  Sex: Female

DRUGS (7)
  1. LUPRON DEPOT [Suspect]
     Indication: PRODUCT USED FOR UNKNOWN INDICATION
  2. DIGOXIN [Concomitant]
     Indication: PRODUCT USED FOR UNKNOWN INDICATION
  3. K-DUR [Concomitant]
     Indication: PRODUCT USED FOR UNKNOWN INDICATION
  4. COREG [Concomitant]
     Indication: PRODUCT USED FOR UNKNOWN INDICATION
  5. TORESMIDE (TORASEMIDE) [Concomitant]
     Indication: PRODUCT USED FOR UNKNOWN INDICATION
  6. LISINOPRIL [Concomitant]
     Indication: PRODUCT USED FOR UNKNOWN INDICATION
  7. ECOTRIN [Concomitant]
     Indication: PRODUCT USED FOR UNKNOWN INDICATION

REACTIONS (14)
  - Alopecia [Unknown]
  - Pruritus generalised [Unknown]
  - Dry mouth [Unknown]
  - Dyspnoea [Unknown]
  - Flushing [Unknown]
  - Erythema [Unknown]
  - Mood swings [Unknown]
  - Depressed mood [Unknown]
  - Diarrhoea [Unknown]
  - Abnormal dreams [Unknown]
  - Vision blurred [Recovered/Resolved]
  - Loss of consciousness [Recovered/Resolved]
  - Dizziness [Unknown]
  - Influenza like illness [Recovered/Resolved]
